FAERS Safety Report 6093298-8 (Version None)
Quarter: 2009Q1

REPORT INFORMATION
  Report Type: 
  Country: None (occurrence: None)
  Receive Date: 20090226
  Receipt Date: 20090217
  Transmission Date: 20090719
  Serious: Yes (Hospitalization)
  Sender: FDA-Public Use
  Company Number: GB-AMGEN-US334961

PATIENT
  Sex: Male
  Weight: 82 kg

DRUGS (1)
  1. ENBREL [Suspect]
     Indication: DRUG USE FOR UNKNOWN INDICATION
     Dosage: 25MG, FREQUENCY UNSPECIFIED
     Route: 058

REACTIONS (3)
  - ARTHROPATHY [None]
  - HIP ARTHROPLASTY [None]
  - WEIGHT INCREASED [None]
